FAERS Safety Report 4576048-3 (Version None)
Quarter: 2005Q1

REPORT INFORMATION
  Report Type: 
  Country: None (occurrence: None)
  Receive Date: 20050204
  Receipt Date: 20050120
  Transmission Date: 20050727
  Serious: Yes (Hospitalization)
  Sender: FDA-Public Use
  Company Number: BE-2005-000922

PATIENT
  Age: 37 Year
  Sex: Female

DRUGS (3)
  1. BETAFERON (INTERFERON BETA 1B) INJECTION 250 MG [Suspect]
     Indication: MULTIPLE SCLEROSIS
     Dosage: 8 MIU, EVERY 2D, CUBCUTANEOUS
     Route: 058
     Dates: start: 19990901, end: 20040501
  2. TEGRETOL [Concomitant]
  3. AUGMENTAN I.V. (AMOXICILLIN SODIUM, CLAVULANATE POTASSIUM) [Concomitant]

REACTIONS (2)
  - LEUKOPENIA [None]
  - SYSTEMIC LUPUS ERYTHEMATOSUS [None]
